FAERS Safety Report 12290008 (Version 1)
Quarter: 2016Q2

REPORT INFORMATION
  Report Type: Spontaneous
  Country: None (occurrence: None)
  Receive Date: 20160420
  Receipt Date: 20160420
  Transmission Date: 20160815
  Serious: No
  Sender: FDA-Public Use
  Company Number: None

PATIENT
  Age: 35 Year
  Sex: Male

DRUGS (1)
  1. ENBREL [Suspect]
     Active Substance: ETANERCEPT
     Dosage: 50MG/ML QWEEK SQ
     Route: 058

REACTIONS (2)
  - Migraine [None]
  - Therapy cessation [None]

NARRATIVE: CASE EVENT DATE: 20160315
